FAERS Safety Report 10206361 (Version 1)
Quarter: 2014Q2

REPORT INFORMATION
  Report Type: Spontaneous
  Country: US (occurrence: US)
  Receive Date: 20140530
  Receipt Date: 20140530
  Transmission Date: 20141212
  Serious: Yes (Hospitalization)
  Sender: FDA-Public Use
  Company Number: US-009507513-1405USA014423

PATIENT
  Sex: Female

DRUGS (3)
  1. JANUVIA [Suspect]
     Indication: DIABETES MELLITUS
     Dosage: 50 MG, QD
     Route: 048
     Dates: start: 201404, end: 2014
  2. CRESTOR [Concomitant]
     Dosage: UNK
  3. FENOFIBRATE [Concomitant]

REACTIONS (1)
  - Abdominal pain [Unknown]
